FAERS Safety Report 22089480 (Version 1)
Quarter: 2023Q1

REPORT INFORMATION
  Report Type: Spontaneous
  Country: US (occurrence: None)
  Receive Date: 20230310
  Receipt Date: 20230310
  Transmission Date: 20230417
  Serious: Yes (Life-Threatening, Hospitalization, Disabling, Other)
  Sender: FDA-Public Use
  Company Number: None

PATIENT
  Age: 30 Year
  Sex: Male
  Weight: 93.5 kg

DRUGS (1)
  1. TRENBOLONE [Suspect]
     Active Substance: TRENBOLONE

REACTIONS (4)
  - Malaise [None]
  - Petechiae [None]
  - Acute hepatic failure [None]
  - Liver transplant [None]

NARRATIVE: CASE EVENT DATE: 20230228
